FAERS Safety Report 7588794-8 (Version None)
Quarter: 2011Q3

REPORT INFORMATION
  Report Type: 
  Country: None (occurrence: None)
  Receive Date: 20110705
  Receipt Date: 20110628
  Transmission Date: 20111222
  Serious: Yes (Hospitalization)
  Sender: FDA-Public Use
  Company Number: CA-SANOFI-AVENTIS-2011SA041486

PATIENT
  Age: 57 Year
  Sex: Male
  Weight: 107 kg

DRUGS (8)
  1. BLINDED THERAPY [Suspect]
     Route: 048
     Dates: start: 20091205
  2. METOPROLOL TARTRATE [Concomitant]
     Dates: start: 20090910, end: 20100426
  3. METOPROLOL TARTRATE [Concomitant]
     Dates: start: 20100101, end: 20110530
  4. BUPROPION HCL [Concomitant]
  5. LIPITOR [Concomitant]
     Dates: start: 20090115
  6. DRONEDARONE HCL [Suspect]
     Indication: ATRIAL FIBRILLATION
     Route: 048
     Dates: start: 20100426, end: 20100429
  7. ASPIRIN [Concomitant]
     Dates: start: 20090125
  8. HYDROCHLOROTHIAZIDE [Concomitant]

REACTIONS (3)
  - DRUG INTOLERANCE [None]
  - ELECTROCARDIOGRAM QT PROLONGED [None]
  - ARRHYTHMIA SUPRAVENTRICULAR [None]
